FAERS Safety Report 21132213 (Version 4)
Quarter: 2024Q2

REPORT INFORMATION
  Report Type: Report from Study
  Country: DE (occurrence: DE)
  Receive Date: 20220726
  Receipt Date: 20240624
  Transmission Date: 20240716
  Serious: Yes (Death, Hospitalization, Other)
  Sender: FDA-Public Use
  Company Number: DE-PFM-2022-02454

PATIENT
  Age: 70 Year
  Sex: Female
  Weight: 65 kg

DRUGS (17)
  1. BRAFTOVI [Suspect]
     Active Substance: ENCORAFENIB
     Indication: Colorectal cancer
     Dosage: 300 MG PER DAY
     Route: 048
     Dates: start: 20211209, end: 202203
  2. CETUXIMAB [Suspect]
     Active Substance: CETUXIMAB
     Indication: Colorectal cancer
     Dosage: 250 MG/M2/ WEEK
     Route: 042
     Dates: start: 20211209
  3. CETUXIMAB [Suspect]
     Active Substance: CETUXIMAB
     Dosage: UNK
     Route: 042
     Dates: start: 20220225, end: 20220304
  4. CITALOPRAM HYDROCHLORIDE [Concomitant]
     Active Substance: CITALOPRAM HYDROCHLORIDE
     Indication: Depression
     Dosage: 10 MG, DAILY
     Route: 048
  5. POTASSIUM IODIDE [Concomitant]
     Active Substance: POTASSIUM IODIDE
     Indication: Thyroid disorder
     Dosage: 200 MG,DAILY
     Route: 048
  6. ACETAMINOPHEN\CAFFEINE\PROPYPHENAZONE [Concomitant]
     Active Substance: ACETAMINOPHEN\CAFFEINE\PROPYPHENAZONE
     Indication: Prophylaxis
     Dosage: 1000 MG, PRN (AS NEEDED)
     Route: 048
     Dates: end: 20211215
  7. ACETAMINOPHEN\CAFFEINE\PROPYPHENAZONE [Concomitant]
     Active Substance: ACETAMINOPHEN\CAFFEINE\PROPYPHENAZONE
     Dosage: 500 MG, QID (4/DAY)
     Route: 048
     Dates: start: 20211216, end: 20220214
  8. PANTOPRAZOLE SODIUM [Concomitant]
     Active Substance: PANTOPRAZOLE SODIUM
     Indication: Prophylaxis
     Dosage: 40 MG, DAILY
     Route: 048
  9. ALVESCO [Concomitant]
     Active Substance: CICLESONIDE
     Indication: Asthma
     Dosage: 80 UG, BID (2/DAY)
     Route: 065
  10. ELIQUIS [Concomitant]
     Active Substance: APIXABAN
     Indication: Deep vein thrombosis
     Dosage: 2.5 MG, BID (2/DAY)
     Route: 048
     Dates: start: 2021, end: 20220307
  11. MCP [Concomitant]
     Active Substance: METOCLOPRAMIDE HYDROCHLORIDE
     Indication: Prophylaxis
     Dosage: 10 MG, PRN (AS NEEDED)
     Route: 048
     Dates: start: 20211206
  12. LOPERAMIDE [Concomitant]
     Active Substance: LOPERAMIDE
     Dosage: 2 MG, PRN, (AS NEEDED)
     Route: 048
     Dates: start: 20211206, end: 20220308
  13. PLIAZON [CERAMIDE;PALMITIC ACID;PARAFFIN, LIQUID;PHYTOMENADIONE;PHYTOS [Concomitant]
     Indication: Prophylaxis
     Dosage: UNK, TWICE DAILY
     Route: 062
     Dates: start: 20211206
  14. MINOCYCLINE HYDROCHLORIDE [Concomitant]
     Active Substance: MINOCYCLINE HYDROCHLORIDE
     Indication: Prophylaxis
     Dosage: 50 MG, BID (2/DAY)
     Route: 048
     Dates: start: 20211206, end: 20220127
  15. METROGEL [Concomitant]
     Active Substance: METRONIDAZOLE
     Indication: Prophylaxis
     Dosage: UNOWN PRN, (AS NEEDED)
     Route: 062
     Dates: start: 20211206, end: 20220308
  16. IBUPROFEN [Concomitant]
     Active Substance: IBUPROFEN
     Dosage: 600 MG, PRN, (AS NEEDED)
     Route: 048
     Dates: start: 20211216
  17. MOVICOL [Concomitant]
     Active Substance: POLYETHYLENE GLYCOL 3350\POTASSIUM CHLORIDE\SODIUM BICARBONATE\SODIUM CHLORIDE
     Indication: Prophylaxis
     Dosage: 1 BAG, DAILY
     Route: 048
     Dates: start: 20220215

REACTIONS (6)
  - Haematochezia [Fatal]
  - Acute kidney injury [Unknown]
  - Infection [Unknown]
  - Skin ulcer [Not Recovered/Not Resolved]
  - Nail infection [Not Recovered/Not Resolved]
  - Pain [Not Recovered/Not Resolved]

NARRATIVE: CASE EVENT DATE: 20220101
